FAERS Safety Report 7137397 (Version 3)
Quarter: 2017Q1

REPORT INFORMATION
  Report Type: Spontaneous
  Country: US (occurrence: US)
  Receive Date: 20091002
  Receipt Date: 20170111
  Transmission Date: 20170429
  Serious: Yes (Other)
  Sender: FDA-Public Use
  Company Number: US-ASTRAZENECA-2008UW19928

PATIENT
  Age: 67 Year
  Sex: Female
  Weight: 140 kg

DRUGS (10)
  1. ATACAND [Suspect]
     Active Substance: CANDESARTAN CILEXETIL
     Indication: HYPERTENSION
     Dosage: HALF A TAB DAILY
     Route: 048
     Dates: start: 2009, end: 2009
  2. PREVACID [Concomitant]
     Active Substance: LANSOPRAZOLE
  3. ZYRTEC [Concomitant]
     Active Substance: CETIRIZINE HYDROCHLORIDE
  4. FLONASE [Concomitant]
     Active Substance: FLUTICASONE PROPIONATE
  5. VITAMINS [Concomitant]
     Active Substance: VITAMINS
  6. TYLENOL [Concomitant]
     Active Substance: ACETAMINOPHEN
     Indication: ARTHRITIS
     Dosage: 500 MG FOR THE PAST 4 TO 5 MONTHS, UPTO 4 TABS.
     Route: 048
  7. LISINOPRIL. [Suspect]
     Active Substance: LISINOPRIL
     Indication: HYPERTENSION
     Route: 048
     Dates: start: 2009, end: 2009
  8. ATACAND [Suspect]
     Active Substance: CANDESARTAN CILEXETIL
     Indication: HYPERTENSION
     Dosage: HALF A TAB DAILY
     Route: 048
     Dates: start: 2010
  9. ARIMIDEX [Suspect]
     Active Substance: ANASTROZOLE
     Route: 048
     Dates: start: 20080910
  10. FISH OIL [Concomitant]
     Active Substance: FISH OIL

REACTIONS (15)
  - Abdominal pain upper [Recovered/Resolved]
  - Fatigue [Unknown]
  - Constipation [Unknown]
  - Body height decreased [Not Recovered/Not Resolved]
  - Breast cancer female [Unknown]
  - Osteopenia [Unknown]
  - Cough [Unknown]
  - Cognitive disorder [Unknown]
  - Drug hypersensitivity [Unknown]
  - Anorectal discomfort [Unknown]
  - Chills [Unknown]
  - Abdominal pain [Recovered/Resolved]
  - Dizziness postural [Recovered/Resolved]
  - Headache [Unknown]
  - Osteoporosis [Not Recovered/Not Resolved]

NARRATIVE: CASE EVENT DATE: 2008
